FAERS Safety Report 5869518-9 (Version None)
Quarter: 2008Q3

REPORT INFORMATION
  Report Type: 
  Country: None (occurrence: None)
  Receive Date: 20080904
  Receipt Date: 20080826
  Transmission Date: 20090109
  Serious: Yes (Hospitalization)
  Sender: FDA-Public Use
  Company Number: GB-RANBAXY-2008RR-17598

PATIENT

DRUGS (2)
  1. GABAPENTIN [Suspect]
  2. MORPHINE [Suspect]
     Indication: HERPES ZOSTER
     Dosage: 10 MG, BID
     Dates: start: 20080808, end: 20080811

REACTIONS (2)
  - MYOCLONUS [None]
  - SOMNOLENCE [None]
